FAERS Safety Report 5461019-5 (Version None)
Quarter: 2007Q3

REPORT INFORMATION
  Report Type: 
  Country: None (occurrence: None)
  Receive Date: 20070810
  Receipt Date: 20070731
  Transmission Date: 20080115
  Serious: Yes (Other)
  Sender: FDA-Public Use
  Company Number: 200711475BWH

PATIENT
  Sex: Female

DRUGS (1)
  1. TRASYLOL [Suspect]
     Dates: start: 20050101

REACTIONS (1)
  - ARTERIAL THROMBOSIS [None]
